FAERS Safety Report 17518605 (Version 1)
Quarter: 2020Q1

REPORT INFORMATION
  Report Type: Report from Study
  Country: US (occurrence: US)
  Receive Date: 20200310
  Receipt Date: 20200310
  Transmission Date: 20200409
  Serious: Yes (Hospitalization)
  Sender: FDA-Public Use
  Company Number: NVSC2020US064366

PATIENT
  Age: 16 Year
  Sex: Male

DRUGS (11)
  1. CYTARABINE. [Suspect]
     Active Substance: CYTARABINE
     Indication: ACUTE LYMPHOCYTIC LEUKAEMIA
     Dosage: 140 MG, ONCE/SINGLE DAYS 1-4, 8-11
     Route: 042
     Dates: start: 20191223
  2. PEGASPARGASE [Suspect]
     Active Substance: PEGASPARGASE
     Indication: ACUTE LYMPHOCYTIC LEUKAEMIA
     Dosage: 4650 IU, ONCE/SINGLE DAY 15
     Route: 042
     Dates: start: 20200106
  3. VINCRISTINE [Suspect]
     Active Substance: VINCRISTINE
     Indication: ACUTE LYMPHOCYTIC LEUKAEMIA
     Dosage: 2 MG, ONCE/SINGLE, PUSH ONCE
     Route: 042
     Dates: start: 20200106, end: 20200221
  4. METHOTREXATE SODIUM. [Suspect]
     Active Substance: METHOTREXATE SODIUM
     Indication: ACUTE MYELOID LEUKAEMIA
     Dosage: 15 MG, ONCE/SINGLE
     Route: 037
     Dates: start: 20191223, end: 20200221
  5. CYCLOPHOSPHAMIDE. [Suspect]
     Active Substance: CYCLOPHOSPHAMIDE
     Dosage: 1840 MG ONCE
     Route: 042
     Dates: start: 20200127, end: 20200127
  6. CYCLOPHOSPHAMIDE. [Suspect]
     Active Substance: CYCLOPHOSPHAMIDE
     Indication: ACUTE LYMPHOCYTIC LEUKAEMIA
     Dosage: 1868 MG, ONCE/SINGLE
     Route: 042
     Dates: start: 20191223
  7. CYTARABINE. [Suspect]
     Active Substance: CYTARABINE
     Dosage: 138 MG, ONCE/SINGLE DAYS 29-32, 36-39
     Route: 042
     Dates: start: 20200127, end: 20200206
  8. INC424A [Suspect]
     Active Substance: RUXOLITINIB
     Dosage: 90 MG, BID
     Route: 048
     Dates: start: 20200127, end: 20200221
  9. INC424A [Suspect]
     Active Substance: RUXOLITINIB
     Indication: ACUTE MYELOID LEUKAEMIA
     Dosage: 95 MG, BID
     Route: 048
     Dates: start: 20191223
  10. MERCAPTOPURINE. [Suspect]
     Active Substance: MERCAPTOPURINE
     Indication: ACUTE LYMPHOCYTIC LEUKAEMIA
     Dosage: 125 MG, QD
     Route: 048
     Dates: start: 20191223, end: 20200221
  11. PEGASPARGASE [Suspect]
     Active Substance: PEGASPARGASE
     Dosage: 4575 IU, ONCE/SINGLE DAY 43
     Route: 042
     Dates: start: 20200210, end: 20200210

REACTIONS (1)
  - Febrile neutropenia [Not Recovered/Not Resolved]

NARRATIVE: CASE EVENT DATE: 20200220
